FAERS Safety Report 13460356 (Version 1)
Quarter: 2017Q2

REPORT INFORMATION
  Report Type: Report from Study
  Country: None (occurrence: PT)
  Receive Date: 20170420
  Receipt Date: 20170420
  Transmission Date: 20170830
  Serious: Yes (Other)
  Sender: FDA-Public Use
  Company Number: PT-ABBVIE-17K-130-1949085-00

PATIENT
  Age: 36 Year
  Sex: Male

DRUGS (1)
  1. HUMIRA [Suspect]
     Active Substance: ADALIMUMAB
     Indication: ANKYLOSING SPONDYLITIS
     Route: 058
     Dates: start: 20161011

REACTIONS (7)
  - Diarrhoea [Unknown]
  - Inguinal hernia [Not Recovered/Not Resolved]
  - Dyspepsia [Unknown]
  - Dyspepsia [Recovered/Resolved]
  - Flatulence [Recovered/Resolved]
  - Flatulence [Unknown]
  - Diarrhoea [Recovered/Resolved]

NARRATIVE: CASE EVENT DATE: 201612
